FAERS Safety Report 18498583 (Version 1)
Quarter: 2020Q4

REPORT INFORMATION
  Report Type: Report from Study
  Country: FR (occurrence: FR)
  Receive Date: 20201112
  Receipt Date: 20201112
  Transmission Date: 20210114
  Serious: Yes (Hospitalization)
  Sender: FDA-Public Use
  Company Number: FR-SHIRE-FR202014552

PATIENT
  Age: 60 Year
  Sex: Female
  Weight: 56 kg

DRUGS (16)
  1. TEDUGLUTIDE [Suspect]
     Active Substance: TEDUGLUTIDE
     Indication: SHORT-BOWEL SYNDROME
     Dosage: 0.3 MILLILITER, 1X/DAY:QD (DAILY)
     Route: 058
     Dates: start: 201704
  2. TEDUGLUTIDE [Suspect]
     Active Substance: TEDUGLUTIDE
     Dosage: 3 MILLIGRAM (TED DOSES 3 PER WEEK WITH DAILY DOSE OF 0.05 MG/KG), QD
     Route: 065
     Dates: start: 20180604
  3. TEDUGLUTIDE [Suspect]
     Active Substance: TEDUGLUTIDE
     Dosage: 3.15 MILLIGRAM (TED DOSES 3 PER WEEK WITH DAILY DOSE OF 0.05 MG/KG), QD
     Route: 065
     Dates: start: 20170322, end: 20180603
  4. TEDUGLUTIDE [Suspect]
     Active Substance: TEDUGLUTIDE
     Dosage: 3.15 MILLIGRAM (TED DOSES 3 PER WEEK WITH DAILY DOSE OF 0.05 MG/KG), QD
     Route: 065
     Dates: start: 20170322, end: 20180603
  5. DUROGESIC [Concomitant]
     Active Substance: FENTANYL
     Dosage: 175 MICROGRAM, QD
     Route: 062
     Dates: start: 20190620, end: 20190622
  6. TEDUGLUTIDE [Suspect]
     Active Substance: TEDUGLUTIDE
     Dosage: 3.15 MILLIGRAM (TED DOSES 3 PER WEEK WITH DAILY DOSE OF 0.05 MG/KG), QD
     Route: 065
     Dates: start: 20170322, end: 20180603
  7. DUROGESIC [Concomitant]
     Active Substance: FENTANYL
     Dosage: 175 MICROGRAM, EVERY 3 DAYS
     Route: 062
     Dates: start: 20190623
  8. TEDUGLUTIDE [Suspect]
     Active Substance: TEDUGLUTIDE
     Indication: SHORT-BOWEL SYNDROME
     Dosage: 0.3 MILLILITER, 1X/DAY:QD (DAILY)
     Route: 058
     Dates: start: 201704
  9. TEDUGLUTIDE [Suspect]
     Active Substance: TEDUGLUTIDE
     Indication: SHORT-BOWEL SYNDROME
     Dosage: 0.3 MILLILITER, 1X/DAY:QD (DAILY)
     Route: 058
     Dates: start: 201704
  10. TEDUGLUTIDE [Suspect]
     Active Substance: TEDUGLUTIDE
     Dosage: 3 MILLIGRAM (TED DOSES 3 PER WEEK WITH DAILY DOSE OF 0.05 MG/KG), QD
     Route: 065
     Dates: start: 20180604
  11. TEDUGLUTIDE [Suspect]
     Active Substance: TEDUGLUTIDE
     Indication: SHORT-BOWEL SYNDROME
     Dosage: 0.3 MILLILITER, 1X/DAY:QD (DAILY)
     Route: 058
     Dates: start: 201704
  12. TEDUGLUTIDE [Suspect]
     Active Substance: TEDUGLUTIDE
     Dosage: 3 MILLIGRAM (TED DOSES 3 PER WEEK WITH DAILY DOSE OF 0.05 MG/KG), QD
     Route: 065
     Dates: start: 20180604
  13. DUROGESIC [Concomitant]
     Active Substance: FENTANYL
     Indication: BACK PAIN
     Dosage: 50 MICROGRAM, ONE DAY EVERY 3 DAYS
     Route: 062
     Dates: start: 201904, end: 20190619
  14. TEDUGLUTIDE [Suspect]
     Active Substance: TEDUGLUTIDE
     Dosage: 3.15 MILLIGRAM (TED DOSES 3 PER WEEK WITH DAILY DOSE OF 0.05 MG/KG), QD
     Route: 065
     Dates: start: 20170322, end: 20180603
  15. TEDUGLUTIDE [Suspect]
     Active Substance: TEDUGLUTIDE
     Dosage: 3 MILLIGRAM (TED DOSES 3 PER WEEK WITH DAILY DOSE OF 0.05 MG/KG), QD
     Route: 065
     Dates: start: 20180604
  16. KETAMINE [Concomitant]
     Active Substance: KETAMINE
     Indication: BACK PAIN
     Dosage: 30 MILLIGRAM, QD
     Route: 042
     Dates: start: 20190618, end: 20190619

REACTIONS (2)
  - Haematoma [Recovered/Resolved]
  - Meningioma [Recovered/Resolved]

NARRATIVE: CASE EVENT DATE: 20180622
